FAERS Safety Report 7791390-0 (Version None)
Quarter: 2011Q4

REPORT INFORMATION
  Report Type: 
  Country: None (occurrence: None)
  Receive Date: 20111003
  Receipt Date: 20110920
  Transmission Date: 20120403
  Serious: Yes (Other)
  Sender: FDA-Public Use
  Company Number: US-ELI_LILLY_AND_COMPANY-US201109006832

PATIENT
  Sex: Female

DRUGS (11)
  1. FISH OIL [Concomitant]
  2. SIMVASTATIN [Concomitant]
     Indication: BLOOD CHOLESTEROL
  3. MAXALT                                  /USA/ [Concomitant]
     Indication: MIGRAINE
  4. ABILIFY [Concomitant]
  5. TOPAMAX [Concomitant]
     Indication: MIGRAINE
  6. IRON [Concomitant]
  7. CENTRUM SILVER [Concomitant]
  8. LEVOTHROID [Concomitant]
  9. CYMBALTA [Suspect]
     Indication: DEPRESSION
     Dosage: 90 MG, QD
     Dates: start: 20070101
  10. OMEPRAZOLE [Concomitant]
     Indication: GASTROOESOPHAGEAL REFLUX DISEASE
     Dosage: UNK
  11. CYMBALTA [Suspect]
     Dosage: 90 MG, QD
     Dates: start: 20110601, end: 20110911

REACTIONS (3)
  - CLOSTRIDIAL INFECTION [None]
  - DIARRHOEA [None]
  - KNEE ARTHROPLASTY [None]
